FAERS Safety Report 4745795-2 (Version None)
Quarter: 2005Q3

REPORT INFORMATION
  Report Type: 
  Country: None (occurrence: None)
  Receive Date: 20050816
  Receipt Date: 20050728
  Transmission Date: 20060218
  Serious: Yes (Other)
  Sender: FDA-Public Use
  Company Number: PHEH2005US08401

PATIENT
  Age: 79 Year
  Sex: Male

DRUGS (8)
  1. ENABLEX [Suspect]
     Indication: BLADDER SPASM
     Dosage: 7.5 MG, QD
     Route: 048
     Dates: start: 20050401
  2. REMERON [Concomitant]
  3. LEXAPRO [Concomitant]
  4. LIPITOR [Concomitant]
  5. ALLOPURINOL [Concomitant]
  6. LANOXIN [Concomitant]
  7. PLAVIX [Concomitant]
  8. PERCOCET [Concomitant]

REACTIONS (4)
  - ALANINE AMINOTRANSFERASE INCREASED [None]
  - ASPARTATE AMINOTRANSFERASE INCREASED [None]
  - BLOOD ALKALINE PHOSPHATASE [None]
  - HEPATIC ENZYME INCREASED [None]
